FAERS Safety Report 20838956 (Version 1)
Quarter: 2022Q2

REPORT INFORMATION
  Report Type: Spontaneous
  Country: US (occurrence: US)
  Receive Date: 20220517
  Receipt Date: 20220517
  Transmission Date: 20220721
  Serious: Yes (Hospitalization)
  Sender: FDA-Public Use
  Company Number: US-KARYOPHARM-2022KPT000517

PATIENT

DRUGS (1)
  1. XPOVIO [Suspect]
     Active Substance: SELINEXOR
     Indication: Plasma cell myeloma
     Dosage: 60 MG, WEEKLY ON WEDNESDAYS
     Route: 048
     Dates: start: 20220427

REACTIONS (2)
  - Infection [Unknown]
  - Constipation [Unknown]

NARRATIVE: CASE EVENT DATE: 20220101
